FAERS Safety Report 9450005 (Version 2)
Quarter: 2013Q3

REPORT INFORMATION
  Report Type: Spontaneous
  Country: US (occurrence: US)
  Receive Date: 20130809
  Receipt Date: 20130830
  Transmission Date: 20140515
  Serious: Yes (Other)
  Sender: FDA-Public Use
  Company Number: US-PFIZER INC-2013231603

PATIENT
  Age: 69 Year
  Sex: Female
  Weight: 102 kg

DRUGS (9)
  1. EFFEXOR XR [Suspect]
     Indication: DEPRESSION
     Dosage: 150 MG, DAILY
     Route: 048
     Dates: start: 201302
  2. ALDACTONE [Suspect]
     Indication: CARDIAC FAILURE CONGESTIVE
     Dosage: 25 MG, 2X/DAY
     Route: 048
  3. ALDACTONE [Suspect]
     Indication: ATRIAL FIBRILLATION
  4. LANTUS [Concomitant]
     Indication: DIABETES MELLITUS
     Dosage: 35 IU, DAILY
  5. BENICAR [Concomitant]
     Indication: PULMONARY HYPERTENSION
     Dosage: 5 MG, DAILY
  6. ADCIRCA [Concomitant]
     Indication: CHRONIC OBSTRUCTIVE PULMONARY DISEASE
     Dosage: 40 MG, DAILY
     Route: 048
  7. PROAIR HFA [Concomitant]
     Indication: CHRONIC OBSTRUCTIVE PULMONARY DISEASE
     Dosage: 2 DF, 2X/DAY
     Route: 055
  8. SYMBICORT [Concomitant]
     Indication: CHRONIC OBSTRUCTIVE PULMONARY DISEASE
     Dosage: 2 DF, 2X/DAY
     Route: 055
  9. EXELON [Concomitant]
     Indication: DEMENTIA
     Dosage: 9.3 MG, DAILY
     Route: 062

REACTIONS (3)
  - Rib fracture [Unknown]
  - Wrist fracture [Not Recovered/Not Resolved]
  - Fall [Unknown]
